FAERS Safety Report 9636567 (Version 1)
Quarter: 2013Q4

REPORT INFORMATION
  Report Type: Spontaneous
  Country: US (occurrence: US)
  Receive Date: 20131021
  Receipt Date: 20131021
  Transmission Date: 20140711
  Serious: Yes (Other)
  Sender: FDA-Public Use
  Company Number: US-RB-058812-13

PATIENT
  Age: 25 Year
  Sex: Female

DRUGS (2)
  1. DELSYM-UNIDENTIFIED [Suspect]
     Indication: DRUG ABUSE
     Dosage: DRANK 7 BOTTLES OF DELSYM
     Route: 048
     Dates: start: 20131003
  2. CELEXA [Concomitant]
     Indication: PRODUCT USED FOR UNKNOWN INDICATION

REACTIONS (5)
  - Drug abuse [Not Recovered/Not Resolved]
  - Tremor [Not Recovered/Not Resolved]
  - Dreamy state [Not Recovered/Not Resolved]
  - Feeling abnormal [Not Recovered/Not Resolved]
  - Overdose [Recovered/Resolved]
